FAERS Safety Report 4490844-2 (Version None)
Quarter: 2004Q4

REPORT INFORMATION
  Report Type: 
  Country: None (occurrence: None)
  Receive Date: 20041027
  Receipt Date: 20041020
  Transmission Date: 20050328
  Serious: Yes (Hospitalization)
  Sender: FDA-Public Use
  Company Number: MK200407-0228-2

PATIENT
  Age: 86 Year
  Sex: Female

DRUGS (4)
  1. TOFRANIL [Suspect]
     Indication: POLLAKIURIA
     Dosage: 10MG, DAILY
     Dates: start: 20040615, end: 20040626
  2. KLARICID [Suspect]
     Dates: end: 20040626
  3. NEUROTROPIN [Suspect]
     Dates: end: 20040628
  4. ASTHMOLSIN-M [Suspect]
     Dates: end: 20040627

REACTIONS (3)
  - RASH ERYTHEMATOUS [None]
  - RASH PAPULAR [None]
  - URTICARIA [None]
